FAERS Safety Report 11193272 (Version 1)
Quarter: 2015Q2

REPORT INFORMATION
  Report Type: Spontaneous
  Country: US (occurrence: US)
  Receive Date: 20150616
  Receipt Date: 20150616
  Transmission Date: 20150821
  Serious: Yes (Hospitalization, Other)
  Sender: FDA-Public Use
  Company Number: US-TAKEDA-2014MPI003390

PATIENT
  Age: 85 Year
  Sex: Male
  Weight: 63.49 kg

DRUGS (2)
  1. VELCADE [Suspect]
     Active Substance: BORTEZOMIB
     Dosage: 1.8 (UNITS NOT PROVIDED), 1/WEEK FOR 3-4 WEEKS WITH 1 WEEK OFF
     Route: 065
     Dates: end: 201312
  2. VELCADE [Suspect]
     Active Substance: BORTEZOMIB
     Indication: PLASMA CELL MYELOMA
     Dosage: 2 (UNITS NOT PROVIDED), 1/WEEK FOR 3-4 WEEKS WITH 1 WEEK OFF
     Route: 065
     Dates: start: 201307

REACTIONS (4)
  - Anaemia [Unknown]
  - Dizziness [Not Recovered/Not Resolved]
  - Vision blurred [Unknown]
  - Cognitive disorder [Not Recovered/Not Resolved]
